FAERS Safety Report 9912430 (Version 4)
Quarter: 2014Q2

REPORT INFORMATION
  Report Type: Spontaneous
  Country: CA (occurrence: CA)
  Receive Date: 20140220
  Receipt Date: 20140421
  Transmission Date: 20141212
  Serious: Yes (Other)
  Sender: FDA-Public Use
  Company Number: CA-BRISTOL-MYERS SQUIBB COMPANY-20211785

PATIENT
  Age: 67 Year
  Sex: Male
  Weight: 67.12 kg

DRUGS (4)
  1. ONGLYZA TABS 5 MG [Suspect]
     Indication: TYPE 2 DIABETES MELLITUS
     Dosage: 30OCT12-05JAN14
     Route: 048
     Dates: start: 201112, end: 20140101
  2. DIAMICRON [Concomitant]
     Indication: TYPE 2 DIABETES MELLITUS
     Dosage: 1DF:60UNITS NOS
     Route: 048
  3. GLUCOPHAGE [Concomitant]
     Dosage: 1DF:850 UNITS NOS
  4. LIPITOR [Concomitant]
     Dosage: 1DF:10 UNITS NOS

REACTIONS (1)
  - Neoplasm [Not Recovered/Not Resolved]
